FAERS Safety Report 6048889-7 (Version None)
Quarter: 2009Q1

REPORT INFORMATION
  Report Type: 
  Country: None (occurrence: None)
  Receive Date: 20090123
  Receipt Date: 20090115
  Transmission Date: 20090719
  Serious: Yes (Other)
  Sender: FDA-Public Use
  Company Number: US-JNJCH-2009001515

PATIENT
  Age: 66 Year
  Sex: Female
  Weight: 63.5 kg

DRUGS (2)
  1. PURELL WITH ALOE [Suspect]
     Indication: ANTIBIOTIC PROPHYLAXIS
     Dosage: TEXT:QUARTER SIZE (FREQUENCY UNSPECIFIED)
     Route: 061
  2. LEVOTHYROXINE [Concomitant]
     Indication: THYROID DISORDER
     Dosage: TEXT:UNSPECIFIED
     Route: 065

REACTIONS (3)
  - EYE SWELLING [None]
  - HYPERSENSITIVITY [None]
  - THROAT TIGHTNESS [None]
